FAERS Safety Report 19377532 (Version 4)
Quarter: 2021Q2

REPORT INFORMATION
  Report Type: Spontaneous
  Country: US (occurrence: US)
  Receive Date: 20210605
  Receipt Date: 20210629
  Transmission Date: 20210717
  Serious: No
  Sender: FDA-Public Use
  Company Number: US-UNITED THERAPEUTICS-UNT-2021-010273

PATIENT
  Age: 46 Year
  Sex: Female
  Weight: 80.73 kg

DRUGS (3)
  1. TYVASO [Suspect]
     Active Substance: TREPROSTINIL
     Dosage: 18?54 ?G, QID
  2. TYVASO [Suspect]
     Active Substance: TREPROSTINIL
     Indication: PULMONARY ARTERIAL HYPERTENSION
     Dosage: UNK
     Dates: start: 20210113
  3. OPSUMIT [Concomitant]
     Active Substance: MACITENTAN
     Indication: PRODUCT USED FOR UNKNOWN INDICATION
     Dosage: UNK
     Route: 065

REACTIONS (13)
  - Sinus congestion [Unknown]
  - Nasal congestion [Unknown]
  - Productive cough [Unknown]
  - Pyrexia [Unknown]
  - SARS-CoV-2 test positive [Unknown]
  - Throat tightness [Unknown]
  - Dental caries [Unknown]
  - Sputum discoloured [Unknown]
  - Tooth infection [Unknown]
  - Ocular hyperaemia [Unknown]
  - Taste disorder [Unknown]
  - Ear congestion [Unknown]
  - Toothache [Unknown]

NARRATIVE: CASE EVENT DATE: 2021
